FAERS Safety Report 19728009 (Version 6)
Quarter: 2023Q1

REPORT INFORMATION
  Report Type: Report from Study
  Country: IT (occurrence: IT)
  Receive Date: 20210820
  Receipt Date: 20230210
  Transmission Date: 20230418
  Serious: Yes (Other)
  Sender: FDA-Public Use
  Company Number: IT-TAKEDA-2021TUS050493

PATIENT
  Age: 82 Year
  Sex: Male

DRUGS (14)
  1. TEDUGLUTIDE [Suspect]
     Active Substance: TEDUGLUTIDE
     Indication: Short-bowel syndrome
     Dosage: 4.65 MILLIGRAM, QD
     Route: 042
     Dates: start: 20200627, end: 20220426
  2. TEDUGLUTIDE [Suspect]
     Active Substance: TEDUGLUTIDE
     Indication: Short-bowel syndrome
     Dosage: 4.65 MILLIGRAM, QD
     Route: 042
     Dates: start: 20200627, end: 20220426
  3. TEDUGLUTIDE [Suspect]
     Active Substance: TEDUGLUTIDE
     Indication: Short-bowel syndrome
     Dosage: 4.65 MILLIGRAM, QD
     Route: 042
     Dates: start: 20200627, end: 20220426
  4. TEDUGLUTIDE [Suspect]
     Active Substance: TEDUGLUTIDE
     Indication: Short-bowel syndrome
     Dosage: 4.65 MILLIGRAM, QD
     Route: 042
     Dates: start: 20200627, end: 20220426
  5. FERROUS SULFATE [Concomitant]
     Active Substance: FERROUS SULFATE
     Indication: Iron deficiency anaemia
     Dosage: UNK UNK, QD
     Route: 048
     Dates: start: 20210802
  6. PANTOPRAZOLE [Concomitant]
     Active Substance: PANTOPRAZOLE
     Indication: Gastric disorder
     Dosage: 40 MILLIGRAM
     Route: 048
  7. CHOLECALCIFEROL [Concomitant]
     Active Substance: CHOLECALCIFEROL
     Indication: Nutritional supplementation
     Dosage: 300000 INTERNATIONAL UNIT, QD
     Route: 048
     Dates: start: 2015
  8. GLUCOSALINE [Concomitant]
     Indication: Nutritional supplementation
     Dosage: 1 INTERNATIONAL UNIT
     Route: 048
     Dates: start: 2015
  9. TAUROLIDINE [Concomitant]
     Active Substance: TAUROLIDINE
     Indication: Prophylaxis
     Dosage: 999 MILLILITER
     Route: 065
     Dates: start: 201310
  10. ALLOPURINOL [Concomitant]
     Active Substance: ALLOPURINOL
     Indication: Hyperuricaemia
     Dosage: 100 MILLIGRAM
     Route: 048
  11. ZOLOFT [Concomitant]
     Active Substance: SERTRALINE HYDROCHLORIDE
     Indication: Antidepressant therapy
     Dosage: 100 MILLIGRAM
     Route: 048
  12. LOPERAMIDE [Concomitant]
     Active Substance: LOPERAMIDE
     Indication: Prophylaxis
     Dosage: UNK UNK, TID
     Route: 048
     Dates: start: 2013
  13. RACECADOTRIL [Concomitant]
     Active Substance: RACECADOTRIL
     Indication: Prophylaxis
     Dosage: 100 MILLIGRAM, TID
     Route: 048
  14. ASPIRIN [Concomitant]
     Active Substance: ASPIRIN
     Indication: Prophylaxis
     Dosage: UNK UNK, QD
     Route: 048

REACTIONS (4)
  - Pancreatic duct dilatation [Not Recovered/Not Resolved]
  - Cholecystitis [Not Recovered/Not Resolved]
  - Iron deficiency anaemia [Recovered/Resolved]
  - Prostatomegaly [Not Recovered/Not Resolved]

NARRATIVE: CASE EVENT DATE: 20210802
